FAERS Safety Report 23813187 (Version 2)
Quarter: 2025Q2

REPORT INFORMATION
  Report Type: Spontaneous
  Country: US (occurrence: US)
  Receive Date: 20240503
  Receipt Date: 20250506
  Transmission Date: 20250716
  Serious: No
  Sender: AMNEAL
  Company Number: US-AMNEAL PHARMACEUTICALS-2024-AMRX-00492

PATIENT
  Sex: Male
  Weight: 11.837 kg

DRUGS (2)
  1. VIGABATRIN [Suspect]
     Active Substance: VIGABATRIN
     Indication: Infantile spasms
     Dosage: 700 MILLIGRAM, BID
     Route: 048
  2. ACTHAR [Concomitant]
     Active Substance: CORTICOTROPIN
     Indication: Infantile spasms
     Route: 065
     Dates: start: 20240129

REACTIONS (1)
  - Drug ineffective [Unknown]
